FAERS Safety Report 20110208 (Version 1)
Quarter: 2021Q4

REPORT INFORMATION
  Report Type: Spontaneous
  Country: US (occurrence: US)
  Receive Date: 20211124
  Receipt Date: 20211124
  Transmission Date: 20220303
  Serious: Yes (Other)
  Sender: FDA-Public Use
  Company Number: US-CELGENE-USA-20211104931

PATIENT
  Age: 60 Year
  Sex: Female
  Weight: 88.2 kg

DRUGS (1)
  1. ABECMA [Suspect]
     Active Substance: IDECABTAGENE VICLEUCEL
     Indication: Plasma cell myeloma
     Route: 041
     Dates: start: 20210929, end: 20210929

REACTIONS (2)
  - Cytokine release syndrome [Unknown]
  - Fatigue [Unknown]

NARRATIVE: CASE EVENT DATE: 20210929
